FAERS Safety Report 7516563-3 (Version None)
Quarter: 2011Q2

REPORT INFORMATION
  Report Type: 
  Country: None (occurrence: None)
  Receive Date: 20110601
  Receipt Date: 20110524
  Transmission Date: 20111010
  Serious: Yes (Other)
  Sender: FDA-Public Use
  Company Number: B0723218A

PATIENT
  Age: 66 Year
  Sex: Male

DRUGS (2)
  1. SOLIFENACIN SUCCINATE [Concomitant]
     Route: 048
     Dates: start: 20100601, end: 20101201
  2. AVODART [Suspect]
     Indication: BENIGN PROSTATIC HYPERPLASIA
     Dates: start: 20090601, end: 20110314

REACTIONS (1)
  - PSORIASIS [None]
